FAERS Safety Report 23354012 (Version 1)
Quarter: 2024Q1

REPORT INFORMATION
  Report Type: Spontaneous
  Country: NL (occurrence: NL)
  Receive Date: 20240101
  Receipt Date: 20240101
  Transmission Date: 20240410
  Serious: Yes (Other)
  Sender: FDA-Public Use
  Company Number: NL-LRB-00933079

PATIENT
  Age: 42 Year
  Sex: Male

DRUGS (2)
  1. LORAZEPAM [Suspect]
     Active Substance: LORAZEPAM
     Indication: Anxiety
     Dosage: 1 MILLIGRAM, 4 TIMES A DAY IF NECESSARY
     Route: 065
     Dates: start: 20230314
  2. LORAZEPAM [Suspect]
     Active Substance: LORAZEPAM
     Indication: Tension

REACTIONS (1)
  - Urinary retention [Not Recovered/Not Resolved]
